FAERS Safety Report 5054334-0 (Version None)
Quarter: 2006Q2

REPORT INFORMATION
  Report Type: 
  Country: None (occurrence: None)
  Receive Date: 20060616
  Receipt Date: 20060505
  Transmission Date: 20061013
  Serious: No
  Sender: FDA-Public Use
  Company Number: 224872

PATIENT
  Sex: Male

DRUGS (3)
  1. AVASTIN [Suspect]
     Indication: METASTATIC RENAL CELL CARCINOMA
     Dosage: 414 MG,Q2W,INTRAVENOUS
     Route: 042
     Dates: start: 20060202
  2. SUTENT [Concomitant]
  3. RADIATION (RADIATION THERAPY) [Concomitant]

REACTIONS (1)
  - DYSPHAGIA [None]
